FAERS Safety Report 9896014 (Version 1)
Quarter: 2014Q1

REPORT INFORMATION
  Report Type: Spontaneous
  Country: US (occurrence: US)
  Receive Date: 20140213
  Receipt Date: 20140213
  Transmission Date: 20141002
  Serious: No
  Sender: FDA-Public Use
  Company Number: US-BRISTOL-MYERS SQUIBB COMPANY-18792754

PATIENT
  Age: 46 Year
  Sex: Female
  Weight: 108.84 kg

DRUGS (7)
  1. ABATACEPT SUBQ INJECTION 125MG/ML [Suspect]
     Dosage: 125 MG/ML
     Route: 058
  2. FOLIC ACID [Concomitant]
     Dosage: TAB
     Route: 048
  3. METHOTREXATE [Concomitant]
     Dosage: TAB
     Route: 048
  4. PREDNISONE [Concomitant]
     Dosage: TAB
     Route: 048
  5. ZOLOFT [Concomitant]
     Dosage: TAB
     Route: 048
  6. VICODIN [Concomitant]
     Dosage: 1DF:5-500MG:TAB
     Route: 048
  7. VITAMIN D [Concomitant]
     Dosage: 1DF:400UNIT:TAB
     Route: 048

REACTIONS (2)
  - Pyrexia [Unknown]
  - Injection site pain [Unknown]
